FAERS Safety Report 5978570-1 (Version None)
Quarter: 2008Q4

REPORT INFORMATION
  Report Type: 
  Country: None (occurrence: None)
  Receive Date: 20081204
  Receipt Date: 20081126
  Transmission Date: 20090506
  Serious: Yes (Hospitalization)
  Sender: FDA-Public Use
  Company Number: A0759004A

PATIENT
  Age: 53 Year
  Sex: Male
  Weight: 81.8 kg

DRUGS (5)
  1. AVANDIA [Suspect]
     Dosage: 4MG TWICE PER DAY
     Route: 065
     Dates: start: 20010102, end: 20070623
  2. GLUCOPHAGE [Concomitant]
     Dates: start: 20010601, end: 20021001
  3. METFORMIN HCL [Concomitant]
     Dates: start: 20021101
  4. DIABETA [Concomitant]
     Dates: start: 20041001
  5. MICRONASE [Concomitant]
     Dates: start: 20010201, end: 20040701

REACTIONS (1)
  - MYOCARDIAL INFARCTION [None]
